FAERS Safety Report 7413910-8 (Version None)
Quarter: 2011Q2

REPORT INFORMATION
  Report Type: 
  Country: None (occurrence: None)
  Receive Date: 20110414
  Receipt Date: 20110404
  Transmission Date: 20111010
  Serious: Yes (Hospitalization)
  Sender: FDA-Public Use
  Company Number: US-BIOGENIDEC-2010BI042569

PATIENT
  Age: 55 Year
  Sex: Female

DRUGS (2)
  1. AVONEX [Suspect]
     Indication: MULTIPLE SCLEROSIS
     Route: 030
     Dates: start: 20031111
  2. AVONEX [Suspect]
     Route: 030
     Dates: start: 20090101, end: 20110315

REACTIONS (8)
  - BRUXISM [None]
  - ASTHENIA [None]
  - DEPRESSED LEVEL OF CONSCIOUSNESS [None]
  - URINARY TRACT INFECTION [None]
  - COORDINATION ABNORMAL [None]
  - DYSARTHRIA [None]
  - PARAESTHESIA [None]
  - PYREXIA [None]
